FAERS Safety Report 17026731 (Version 1)
Quarter: 2019Q4

REPORT INFORMATION
  Report Type: Report from Study
  Country: US (occurrence: US)
  Receive Date: 20191113
  Receipt Date: 20191113
  Transmission Date: 20200122
  Serious: Yes (Hospitalization, Other)
  Sender: FDA-Public Use
  Company Number: NVSC2019US033928

PATIENT
  Age: 71 Year
  Sex: Female

DRUGS (1)
  1. ENTRESTO [Suspect]
     Active Substance: SACUBITRIL\VALSARTAN
     Indication: PRODUCT USED FOR UNKNOWN INDICATION
     Dosage: 1 DF (24 MG OF SACUBITRIL AND 26 MG OF VALSARTAN), BID
     Route: 048
     Dates: start: 20190530

REACTIONS (6)
  - Fall [Recovering/Resolving]
  - Asthenia [Unknown]
  - Product dose omission [Unknown]
  - Spinal fracture [Recovering/Resolving]
  - Contusion [Recovering/Resolving]
  - Depressed level of consciousness [Unknown]

NARRATIVE: CASE EVENT DATE: 201910
